FAERS Safety Report 12532133 (Version 3)
Quarter: 2016Q4

REPORT INFORMATION
  Report Type: Spontaneous
  Country: US (occurrence: US)
  Receive Date: 20160706
  Receipt Date: 20161012
  Transmission Date: 20170207
  Serious: Yes (Hospitalization, Disabling, Other)
  Sender: FDA-Public Use
  Company Number: US-SAOL THERAPEUTICS-2016SAO00040

PATIENT
  Age: 74 Year
  Sex: Male
  Weight: 94.33 kg

DRUGS (3)
  1. LIORESAL [Suspect]
     Active Substance: BACLOFEN
     Dosage: UNK
     Dates: start: 20160607, end: 20160611
  2. LIORESAL [Suspect]
     Active Substance: BACLOFEN
     Indication: MUSCLE SPASTICITY
     Dosage: UNK
     Dates: end: 20160406
  3. LIORESAL [Suspect]
     Active Substance: BACLOFEN
     Indication: SPINAL CORD INJURY
     Dosage: 45.08 ?G, \DAY
     Route: 037
     Dates: start: 20160406, end: 20160607

REACTIONS (12)
  - Pulmonary embolism [Unknown]
  - Implant site infection [Unknown]
  - Hepatic function abnormal [Unknown]
  - Device failure [Recovered/Resolved]
  - Klebsiella infection [Unknown]
  - Wound dehiscence [Unknown]
  - Herpes zoster [Unknown]
  - Abasia [Not Recovered/Not Resolved]
  - Serratia infection [Unknown]
  - Meningitis bacterial [Unknown]
  - Diarrhoea [Unknown]
  - Tooth extraction [Unknown]

NARRATIVE: CASE EVENT DATE: 20160307
